FAERS Safety Report 24577191 (Version 1)
Quarter: 2024Q4

REPORT INFORMATION
  Report Type: Spontaneous
  Country: JP (occurrence: JP)
  Receive Date: 20241104
  Receipt Date: 20241104
  Transmission Date: 20250115
  Serious: Yes (Hospitalization)
  Sender: KYOWA
  Company Number: JP-KYOWAKIRIN-2024KK024520

PATIENT

DRUGS (1)
  1. CRYSVITA [Suspect]
     Active Substance: BUROSUMAB-TWZA
     Indication: Albright^s disease
     Dosage: UNK
     Route: 058

REACTIONS (2)
  - Pyrexia [Unknown]
  - Pain in extremity [Unknown]
